FAERS Safety Report 16514460 (Version 1)
Quarter: 2019Q3

REPORT INFORMATION
  Report Type: Spontaneous
  Country: KR (occurrence: KR)
  Receive Date: 20190702
  Receipt Date: 20190702
  Transmission Date: 20191004
  Serious: Yes (Hospitalization)
  Sender: FDA-Public Use
  Company Number: KR-ASTRAZENECA-2019SE93623

PATIENT
  Age: 73 Year
  Sex: Male

DRUGS (1)
  1. IMFINZI [Suspect]
     Active Substance: DURVALUMAB
     Indication: NON-SMALL CELL LUNG CANCER
     Route: 042

REACTIONS (2)
  - Delirium [Not Recovered/Not Resolved]
  - Behaviour disorder [Unknown]
